FAERS Safety Report 5372752-8 (Version None)
Quarter: 2007Q2

REPORT INFORMATION
  Report Type: 
  Country: None (occurrence: None)
  Receive Date: 20070627
  Receipt Date: 20070615
  Transmission Date: 20071010
  Serious: Yes (Hospitalization)
  Sender: FDA-Public Use
  Company Number: DE-PFIZER INC-2007039747

PATIENT
  Sex: Male
  Weight: 82 kg

DRUGS (8)
  1. SUTENT [Suspect]
     Indication: RENAL CELL CARCINOMA STAGE UNSPECIFIED
     Route: 048
  2. LEVOTHYROXINE SODIUM [Concomitant]
     Route: 048
  3. PANTOZOL [Concomitant]
     Route: 048
  4. MUSARIL [Concomitant]
     Route: 048
  5. ANDROCUR [Concomitant]
     Route: 048
  6. LACTULOSE [Concomitant]
     Route: 048
  7. CARBOHYDRATES [Concomitant]
     Route: 048
  8. MESTINON [Concomitant]
     Route: 048

REACTIONS (2)
  - SYNCOPE [None]
  - VOMITING [None]
